FAERS Safety Report 7749021-1 (Version None)
Quarter: 2011Q3

REPORT INFORMATION
  Report Type: 
  Country: None (occurrence: None)
  Receive Date: 20110909
  Receipt Date: 20110826
  Transmission Date: 20111222
  Serious: Yes (Hospitalization, Other)
  Sender: FDA-Public Use
  Company Number: 2011080218

PATIENT
  Age: 84 Year
  Sex: Female
  Weight: 77.1115 kg

DRUGS (9)
  1. DIPENTUM [Suspect]
     Indication: COLITIS ULCERATIVE
     Dosage: 1000 MG (500 MG, 2 IN 1 D), ORAL
     Route: 048
     Dates: start: 20040101, end: 20110821
  2. FLEET PHOPSHO-SODA [Suspect]
     Indication: BOWEL PREPARATION
     Dates: start: 20090101, end: 20090101
  3. GABAPENTIN [Concomitant]
  4. TOPROL-XL [Concomitant]
  5. ASPIRIN [Concomitant]
  6. AMBIEN [Concomitant]
  7. PREDNISONE [Concomitant]
  8. RENAGEL [Concomitant]
  9. RENAVITE (MULTIVITAMINS) [Concomitant]

REACTIONS (7)
  - POLLAKIURIA [None]
  - BLOOD PRESSURE INCREASED [None]
  - RENAL DISORDER [None]
  - CALCINOSIS [None]
  - DIALYSIS [None]
  - PRODUCT PACKAGING ISSUE [None]
  - DIARRHOEA [None]
